FAERS Safety Report 19047246 (Version 1)
Quarter: 2021Q1

REPORT INFORMATION
  Report Type: Spontaneous
  Country: US (occurrence: US)
  Receive Date: 20210323
  Receipt Date: 20210323
  Transmission Date: 20210420
  Serious: No
  Sender: FDA-Public Use
  Company Number: US-TAKEDA-2021TUS016383

PATIENT
  Sex: Male
  Weight: 68 kg

DRUGS (1)
  1. GAMMAGARD LIQUID [Suspect]
     Active Substance: HUMAN IMMUNOGLOBULIN G
     Indication: SECONDARY IMMUNODEFICIENCY
     Dosage: UNK UNK, Q4WEEKS
     Route: 042
     Dates: start: 201911

REACTIONS (2)
  - Off label use [Unknown]
  - No adverse event [Unknown]
